FAERS Safety Report 17274454 (Version 5)
Quarter: 2022Q4

REPORT INFORMATION
  Report Type: Report from Study
  Country: US (occurrence: US)
  Receive Date: 20200115
  Receipt Date: 20221201
  Transmission Date: 20230113
  Serious: Yes (Other)
  Sender: FDA-Public Use
  Company Number: US-TAKEDA-2020TUS001598

PATIENT
  Age: 69 Year
  Sex: Female
  Weight: 77.605 kg

DRUGS (1)
  1. IXAZOMIB [Suspect]
     Active Substance: IXAZOMIB
     Indication: Plasma cell myeloma
     Dosage: 3 MILLIGRAM
     Route: 048
     Dates: start: 20191229, end: 20220912

REACTIONS (16)
  - Osteomyelitis [Unknown]
  - Illness [Unknown]
  - Alopecia [Unknown]
  - Eating disorder [Unknown]
  - Pollakiuria [Unknown]
  - Ocular discomfort [Unknown]
  - Head discomfort [Unknown]
  - Insomnia [Unknown]
  - Decreased appetite [Unknown]
  - Cough [Unknown]
  - Headache [Unknown]
  - Fatigue [Unknown]
  - Nausea [Unknown]
  - Vomiting [Unknown]
  - Rash [Not Recovered/Not Resolved]
  - Diarrhoea [Unknown]

NARRATIVE: CASE EVENT DATE: 20221123
